FAERS Safety Report 8433864-5 (Version None)
Quarter: 2012Q2

REPORT INFORMATION
  Report Type: 
  Country: None (occurrence: None)
  Receive Date: 20120613
  Receipt Date: 20120607
  Transmission Date: 20120825
  Serious: Yes (Hospitalization)
  Sender: FDA-Public Use
  Company Number: CN-PFIZER INC-2012138428

PATIENT
  Age: 48 Year
  Sex: Female
  Weight: 67 kg

DRUGS (3)
  1. DOCETAXEL [Concomitant]
     Indication: CHEMOTHERAPY
     Dosage: 100 MG, D1
     Route: 041
     Dates: start: 20110514, end: 20110514
  2. EPIRUBICIN HYDROCHLORIDE [Suspect]
     Indication: CHEMOTHERAPY
     Dosage: 50 MG, 1X/DAY, D1
     Route: 041
     Dates: start: 20110514, end: 20110514
  3. FLUOROURACIL [Concomitant]
     Indication: CHEMOTHERAPY
     Dosage: 850 MG, D1
     Dates: start: 20110514, end: 20110514

REACTIONS (2)
  - WHITE BLOOD CELL COUNT DECREASED [None]
  - HERPES ZOSTER [None]
